FAERS Safety Report 8461683-2 (Version None)
Quarter: 2012Q2

REPORT INFORMATION
  Report Type: 
  Country: None (occurrence: None)
  Receive Date: 20120625
  Receipt Date: 20120621
  Transmission Date: 20120825
  Serious: Yes (Other)
  Sender: FDA-Public Use
  Company Number: PHEH2012US011282

PATIENT
  Sex: Female
  Weight: 71 kg

DRUGS (3)
  1. PRILOSEC OTC [Concomitant]
     Dosage: UNK UKN, PRN
  2. DIOVAN HCT [Suspect]
     Dosage: 1 DF (160/25 MG), DAILY
     Route: 048
  3. DIOVAN [Suspect]
     Dosage: 80 MG, UNK

REACTIONS (1)
  - BREAST CANCER IN SITU [None]
